FAERS Safety Report 17247536 (Version 1)
Quarter: 2020Q1

REPORT INFORMATION
  Report Type: Spontaneous
  Country: US (occurrence: US)
  Receive Date: 20200108
  Receipt Date: 20200108
  Transmission Date: 20200409
  Serious: Yes (Life-Threatening, Congenital Anomaly, Other)
  Sender: FDA-Public Use
  Company Number: US-HIKMA PHARMACEUTICALS USA INC.-US-H14001-19-06406

PATIENT
  Sex: Female
  Weight: 1.46 kg

DRUGS (2)
  1. METHAMPHETAMINE [Suspect]
     Active Substance: METHAMPHETAMINE
     Indication: PRODUCT USED FOR UNKNOWN INDICATION
     Route: 065
  2. TETRAHYDROCANNABINOL [Suspect]
     Active Substance: DRONABINOL
     Indication: PRODUCT USED FOR UNKNOWN INDICATION
     Route: 065

REACTIONS (32)
  - Congenital oral malformation [Unknown]
  - Nephrocalcinosis [Unknown]
  - Macrocephaly [Unknown]
  - Cerebral ventricle dilatation [Unknown]
  - Retrognathia [Unknown]
  - Necrotising colitis [Unknown]
  - Foetal exposure during pregnancy [Unknown]
  - Patent ductus arteriosus [Unknown]
  - Pulmonary hypertension [Unknown]
  - Optic nerve hypoplasia [Unknown]
  - Chromosomal deletion [Unknown]
  - Atrial septal defect [Unknown]
  - Bacterial pyelonephritis [Unknown]
  - Haematuria [Unknown]
  - Congenital hand malformation [Unknown]
  - Low birth weight baby [Unknown]
  - Respiratory tract malformation [Unknown]
  - Ventricular septal defect [Unknown]
  - Low set ears [Unknown]
  - Vitamin D decreased [Unknown]
  - Brain malformation [Unknown]
  - Intraventricular haemorrhage neonatal [Unknown]
  - Limb malformation [Unknown]
  - Macroglossia [Unknown]
  - Renal salt-wasting syndrome [Unknown]
  - Tethered cord syndrome [Unknown]
  - Chronic respiratory disease [Unknown]
  - Cleft palate [Unknown]
  - Congenital megacolon [Unknown]
  - Premature baby [Unknown]
  - Neonatal hypocalcaemia [Unknown]
  - Congenital renal cyst [Unknown]
